FAERS Safety Report 8337285 (Version 6)
Quarter: 2013Q1

REPORT INFORMATION
  Report Type: Spontaneous
  Country: US (occurrence: US)
  Receive Date: 20120113
  Receipt Date: 20130117
  Transmission Date: 20140127
  Serious: Yes (Hospitalization, Disabling, Other)
  Sender: FDA-Public Use
  Company Number: US-009507513-1201USA01460

PATIENT
  Sex: 0

DRUGS (7)
  1. FOSAMAX [Suspect]
     Indication: OSTEOPOROSIS
     Dosage: 70 MG, UNK
     Route: 048
     Dates: start: 20010606, end: 20100115
  2. FOSAMAX [Suspect]
     Dosage: 150 MG, UNK
     Route: 048
     Dates: start: 200603, end: 200612
  3. FOSAMAX [Suspect]
     Indication: OSTEOPOROSIS
     Dosage: 70 MG, UNK
     Route: 048
     Dates: start: 200804, end: 201001
  4. BONIVA [Suspect]
     Indication: OSTEOPOROSIS
     Dosage: 150 MG, UNK
     Route: 048
     Dates: start: 200603, end: 20100306
  5. BONIVA [Suspect]
     Indication: OSTEOPENIA
  6. GLUCOPHAGE [Concomitant]
     Dates: start: 2000
  7. HORMONES (UNSPECIFIED) [Concomitant]
     Dates: start: 1978, end: 2005

REACTIONS (49)
  - Atypical femur fracture [Not Recovered/Not Resolved]
  - Intramedullary rod insertion [Not Recovered/Not Resolved]
  - Medical device removal [Recovering/Resolving]
  - Breast cancer [Not Recovered/Not Resolved]
  - Deep vein thrombosis [Unknown]
  - Low turnover osteopathy [Not Recovered/Not Resolved]
  - Foot fracture [Unknown]
  - Gallbladder disorder [Unknown]
  - Atypical femur fracture [Not Recovered/Not Resolved]
  - Overdose [Unknown]
  - Gastric disorder [Unknown]
  - Blood cholesterol increased [Unknown]
  - Vitamin D deficiency [Unknown]
  - Appendix disorder [Unknown]
  - Impaired healing [Unknown]
  - Adverse event [Unknown]
  - Synovial cyst [Unknown]
  - Hyperlipidaemia [Unknown]
  - Osteoarthritis [Unknown]
  - Venous insufficiency [Unknown]
  - Large intestine polyp [Unknown]
  - Uterine disorder [Unknown]
  - Atrial flutter [Unknown]
  - Osteoarthritis [Unknown]
  - Ovarian neoplasm [Unknown]
  - Poor venous access [Unknown]
  - Rib fracture [Unknown]
  - Fall [Unknown]
  - Embolism [Unknown]
  - Synovial cyst [Unknown]
  - Spinal osteoarthritis [Unknown]
  - Foot fracture [Unknown]
  - Scoliosis [Unknown]
  - Nocturia [Unknown]
  - Dry mouth [Unknown]
  - Lymphoedema [Unknown]
  - Depression [Unknown]
  - Stress urinary incontinence [Unknown]
  - Barrett^s oesophagus [Unknown]
  - Irritable bowel syndrome [Unknown]
  - Medical device complication [Recovering/Resolving]
  - Adverse drug reaction [Unknown]
  - Gastrooesophageal reflux disease [Unknown]
  - Arthralgia [Unknown]
  - Pain in extremity [Unknown]
  - Musculoskeletal chest pain [Unknown]
  - Musculoskeletal pain [Unknown]
  - Arthralgia [Unknown]
  - Malaise [Recovering/Resolving]
